FAERS Safety Report 7394888-2 (Version None)
Quarter: 2011Q2

REPORT INFORMATION
  Report Type: 
  Country: None (occurrence: None)
  Receive Date: 20110405
  Receipt Date: 20110329
  Transmission Date: 20111010
  Serious: Yes (Hospitalization)
  Sender: FDA-Public Use
  Company Number: B0668411A

PATIENT
  Sex: Female

DRUGS (5)
  1. LOBIVON [Suspect]
     Indication: HYPERTENSION
     Dosage: .5TAB PER DAY
     Route: 048
     Dates: start: 20080705
  2. TALAVIR [Suspect]
     Indication: HERPES ZOSTER
     Dosage: 3TAB PER DAY
     Route: 048
     Dates: start: 20100701, end: 20100705
  3. AMITRIPTYLINE HCL [Suspect]
     Indication: DEPRESSION
     Dosage: 15MG PER DAY
     Route: 048
     Dates: start: 20090705
  4. LORAZEPAM [Suspect]
     Dosage: 7.5MG PER DAY
     Route: 048
     Dates: start: 20090705
  5. MUTABON [Suspect]
     Dosage: 3TAB PER DAY
     Route: 048
     Dates: start: 20090705

REACTIONS (5)
  - SOMNOLENCE [None]
  - SYNCOPE [None]
  - PALPITATIONS [None]
  - DYSPNOEA [None]
  - HYPOTENSION [None]
